FAERS Safety Report 8134371-X (Version None)
Quarter: 2012Q1

REPORT INFORMATION
  Report Type: 
  Country: None (occurrence: None)
  Receive Date: 20120209
  Receipt Date: 20120203
  Transmission Date: 20120608
  Serious: Yes (Other)
  Sender: FDA-Public Use
  Company Number: CL-386-2012

PATIENT
  Age: 37 Year
  Sex: Male

DRUGS (5)
  1. PANTOPRAZOLE [Concomitant]
  2. AMIODARONE HCL [Suspect]
     Indication: ATRIAL FIBRILLATION
     Dosage: 200MG BD
  3. METOPROLOL TARTRATE [Concomitant]
  4. PREDNISONE [Concomitant]
  5. ALENDRONATE SODIUM [Concomitant]

REACTIONS (5)
  - VISUAL FIELD DEFECT [None]
  - HALO VISION [None]
  - PAPILLOEDEMA [None]
  - SUBCUTANEOUS NODULE [None]
  - TOXIC OPTIC NEUROPATHY [None]
